FAERS Safety Report 13964510 (Version 2)
Quarter: 2017Q3

REPORT INFORMATION
  Report Type: Spontaneous
  Country: US (occurrence: US)
  Receive Date: 20170913
  Receipt Date: 20170925
  Transmission Date: 20171128
  Serious: Yes (Life-Threatening, Hospitalization, Other)
  Sender: FDA-Public Use
  Company Number: US-DRREDDYS-USA/USA/17/0093264

PATIENT
  Age: 2 Year
  Sex: Female

DRUGS (1)
  1. ONDANSETRON [Suspect]
     Active Substance: ONDANSETRON
     Indication: PRODUCT USED FOR UNKNOWN INDICATION
     Dosage: FOUR OPENED BLISTER PACKS OF 8MG ONDANSETRON (DOSE 3.56MG/KG, RECOMMENDED DOSE 0.1-0.15MG/KG)
     Route: 048

REACTIONS (6)
  - Electrocardiogram QT prolonged [Recovered/Resolved]
  - Accidental overdose [Unknown]
  - Depressed level of consciousness [Recovering/Resolving]
  - Respiratory failure [Unknown]
  - Generalised tonic-clonic seizure [Unknown]
  - Encephalopathy [Unknown]
